FAERS Safety Report 8053720-4 (Version None)
Quarter: 2012Q1

REPORT INFORMATION
  Report Type: 
  Country: None (occurrence: None)
  Receive Date: 20120118
  Receipt Date: 20120113
  Transmission Date: 20120608
  Serious: Yes (Other)
  Sender: FDA-Public Use
  Company Number: JP-PFIZER INC-2011288976

PATIENT
  Age: 53 Year
  Sex: Female

DRUGS (1)
  1. PREMARIN [Suspect]
     Dosage: 0.625 MG, 1X/DAY
     Route: 048
     Dates: start: 20080412, end: 20111109

REACTIONS (1)
  - THROMBOTIC MICROANGIOPATHY [None]
